FAERS Safety Report 12759873 (Version 1)
Quarter: 2016Q3

REPORT INFORMATION
  Report Type: Spontaneous
  Country: BR (occurrence: BR)
  Receive Date: 20160919
  Receipt Date: 20160919
  Transmission Date: 20161109
  Serious: Yes (Hospitalization)
  Sender: FDA-Public Use
  Company Number: BR-JNJFOC-20160912453

PATIENT
  Sex: Male

DRUGS (2)
  1. CARBOLITHIUM [Suspect]
     Active Substance: LITHIUM CARBONATE
     Indication: PSYCHOMOTOR HYPERACTIVITY
     Route: 065
  2. INVEGA SUSTENNA [Suspect]
     Active Substance: PALIPERIDONE PALMITATE
     Indication: PSYCHOMOTOR HYPERACTIVITY
     Route: 030

REACTIONS (4)
  - Off label use [Unknown]
  - Product use issue [Unknown]
  - Cardio-respiratory arrest [Unknown]
  - Coma [Unknown]
